FAERS Safety Report 7822203-6 (Version None)
Quarter: 2011Q4

REPORT INFORMATION
  Report Type: 
  Country: None (occurrence: None)
  Receive Date: 20111018
  Receipt Date: 20111011
  Transmission Date: 20120403
  Serious: Yes (Other)
  Sender: FDA-Public Use
  Company Number: EG-B.I. PHARMACEUTICALS,INC./RIDGEFIELD-2011-DE-05737GD

PATIENT
  Sex: Male

DRUGS (4)
  1. EMTRICITABINE [Suspect]
     Indication: HIV INFECTION
     Dosage: 200 MG
  2. TENOFOVIR DISOPROXIL FUMARATE [Suspect]
     Indication: HIV INFECTION
     Dosage: 245 MG
  3. NEVIRAPINE [Suspect]
     Indication: HIV INFECTION
     Dosage: 200 MG
  4. NEVIRAPINE [Suspect]
     Dosage: 400 MG

REACTIONS (4)
  - LYMPHADENITIS BACTERIAL [None]
  - ABSCESS NECK [None]
  - IMMUNE RECONSTITUTION SYNDROME [None]
  - KLEBSIELLA INFECTION [None]
